FAERS Safety Report 20373680 (Version 1)
Quarter: 2022Q1

REPORT INFORMATION
  Report Type: Spontaneous
  Country: TR (occurrence: TR)
  Receive Date: 20220125
  Receipt Date: 20220125
  Transmission Date: 20220423
  Serious: Yes (Hospitalization)
  Sender: FDA-Public Use
  Company Number: TR-BAYER-2022A006423

PATIENT
  Age: 52 Year
  Sex: Male
  Weight: 61 kg

DRUGS (5)
  1. LORATADINE [Suspect]
     Active Substance: LORATADINE
     Indication: Urticaria
     Dosage: 1 DF, BID (ONCE IN THE MORNING AND ONCE IN THE EVENING)
     Dates: start: 202110
  2. LORATADINE [Suspect]
     Active Substance: LORATADINE
     Indication: Urticaria
     Dosage: 2 DF, BID (ONCE IN THE MORNING AND ONCE IN THE EVENING)
     Dates: end: 202112
  3. LORATADINE [Suspect]
     Active Substance: LORATADINE
     Indication: Urticaria
     Dosage: UNK
     Dates: start: 202201
  4. LORATADINE [Suspect]
     Active Substance: LORATADINE
     Indication: Urticaria
     Dosage: 1 DF, ONCE (IN THE MORNING)
     Dates: start: 20220112
  5. ECOPRIN [Concomitant]
     Indication: Anticoagulant therapy
     Dosage: 1 DF, QD
     Dates: start: 20220108, end: 20220110

REACTIONS (15)
  - Swollen tongue [None]
  - Pharyngeal swelling [None]
  - Dyspnoea [None]
  - Tremor [None]
  - Feeling cold [None]
  - Hyperhidrosis [None]
  - Hypersensitivity [None]
  - Gastric disorder [None]
  - Palpitations [None]
  - Hyperhidrosis [None]
  - Insomnia [None]
  - Tremor [None]
  - Hyperhidrosis [None]
  - Dyspnoea [None]
  - Inappropriate schedule of product administration [None]

NARRATIVE: CASE EVENT DATE: 20211001
